FAERS Safety Report 16807870 (Version 1)
Quarter: 2019Q3

REPORT INFORMATION
  Report Type: Spontaneous
  Country: IN (occurrence: IN)
  Receive Date: 20190915
  Receipt Date: 20190915
  Transmission Date: 20191005
  Serious: Yes (Death, Other)
  Sender: FDA-Public Use
  Company Number: PHHY2019IN212963

PATIENT
  Age: 6 Year
  Sex: Female

DRUGS (2)
  1. MYCOPHENOLATE MOFETIL. [Suspect]
     Active Substance: MYCOPHENOLATE MOFETIL
     Indication: IMMUNOSUPPRESSANT DRUG THERAPY
     Dosage: UNK
     Route: 065
  2. TACROLIMUS. [Suspect]
     Active Substance: TACROLIMUS
     Indication: IMMUNOSUPPRESSANT DRUG THERAPY
     Dosage: UNK
     Route: 065

REACTIONS (16)
  - Portal hypertension [Unknown]
  - Biliary fistula [Fatal]
  - Diarrhoea [Fatal]
  - Transplant dysfunction [None]
  - Lymphadenopathy [Unknown]
  - Fascioliasis [Fatal]
  - Hepatosplenomegaly [Fatal]
  - Cholestasis [Unknown]
  - Pyrexia [Fatal]
  - Cholangitis [Unknown]
  - Post transplant lymphoproliferative disorder [Unknown]
  - Abdominal pain [Fatal]
  - Septic shock [Fatal]
  - Anaemia [Unknown]
  - Decreased appetite [Fatal]
  - Abscess [Fatal]
